FAERS Safety Report 19440313 (Version 2)
Quarter: 2021Q3

REPORT INFORMATION
  Report Type: Spontaneous
  Country: JP (occurrence: JP)
  Receive Date: 20210621
  Receipt Date: 20210721
  Transmission Date: 20211014
  Serious: Yes (Death, Hospitalization, Other)
  Sender: FDA-Public Use
  Company Number: NVSJ2021JP008819

PATIENT
  Age: 104 Year
  Sex: Female

DRUGS (1)
  1. ENTRESTO [Suspect]
     Active Substance: SACUBITRIL\VALSARTAN
     Indication: CARDIAC FAILURE CHRONIC
     Dosage: 400 MG
     Route: 048
     Dates: start: 20200912, end: 20210619

REACTIONS (5)
  - Head injury [Fatal]
  - General physical health deterioration [Fatal]
  - Delirium [Fatal]
  - Nausea [Fatal]
  - Fall [Unknown]

NARRATIVE: CASE EVENT DATE: 20210607
